FAERS Safety Report 17262060 (Version 8)
Quarter: 2020Q4

REPORT INFORMATION
  Report Type: Report from Study
  Country: IE (occurrence: IE)
  Receive Date: 20200113
  Receipt Date: 20201217
  Transmission Date: 20210113
  Serious: Yes (Hospitalization, Other)
  Sender: FDA-Public Use
  Company Number: IE-JNJFOC-20200111016

PATIENT
  Age: 67 Year
  Sex: Male

DRUGS (27)
  1. DIFENE [Concomitant]
     Active Substance: DICLOFENAC SODIUM
     Route: 050
  2. TRAVOCORT [Concomitant]
     Active Substance: DIFLUCORTOLONE VALERATE\ISOCONAZOLE NITRATE
     Route: 050
  3. DEXAMETHASONE. [Concomitant]
     Active Substance: DEXAMETHASONE
     Route: 050
  4. TARGIN [Concomitant]
     Active Substance: NALOXONE HYDROCHLORIDE\OXYCODONE HYDROCHLORIDE
     Route: 050
  5. LANSOPRAZOLE. [Concomitant]
     Active Substance: LANSOPRAZOLE
     Route: 050
  6. PARACETAMOL [Concomitant]
     Active Substance: ACETAMINOPHEN
     Route: 050
  7. LERCANIDIPINE [Concomitant]
     Active Substance: LERCANIDIPINE
     Route: 050
  8. ACETYLSALICYLIC ACID [Concomitant]
     Active Substance: ASPIRIN
     Route: 050
  9. ZOVIRAX [Concomitant]
     Active Substance: ACYCLOVIR
     Dosage: PRN
     Route: 050
  10. LUPRON DEPOT [Concomitant]
     Active Substance: LEUPROLIDE ACETATE
     Route: 050
  11. DOXANE [Concomitant]
     Route: 050
  12. MOVICOLON [Concomitant]
     Active Substance: POLYETHYLENE GLYCOL 3350\POTASSIUM CHLORIDE\SODIUM BICARBONATE\SODIUM CHLORIDE
     Route: 050
  13. VITAMIN B6 [Concomitant]
     Active Substance: PYRIDOXINE HYDROCHLORIDE
     Route: 050
  14. PROLIA [Concomitant]
     Active Substance: DENOSUMAB
     Route: 050
  15. MOTILIUM [Concomitant]
     Active Substance: DOMPERIDONE
     Route: 050
  16. 3M CAVILON ANTIFUNGAL [Concomitant]
     Active Substance: MICONAZOLE NITRATE
     Route: 050
  17. VALOID                             /00014902/ [Concomitant]
     Active Substance: CYCLIZINE HYDROCHLORIDE
     Route: 050
  18. ABIRATERONE ACETATE. [Suspect]
     Active Substance: ABIRATERONE ACETATE
     Indication: PROSTATE CANCER
     Route: 048
     Dates: start: 20170815
  19. ATORVASTATIN [Concomitant]
     Active Substance: ATORVASTATIN
     Dosage: NIGHT
     Route: 050
  20. CALCICHEW [Concomitant]
     Active Substance: CALCIUM CARBONATE
     Route: 050
  21. GALFER [Concomitant]
     Active Substance: IRON
     Route: 050
  22. STUGERON [Concomitant]
     Active Substance: CINNARIZINE
     Route: 050
  23. OXYNORM [Concomitant]
     Active Substance: OXYCODONE HYDROCHLORIDE
     Route: 050
  24. DULOXETINE. [Concomitant]
     Active Substance: DULOXETINE
     Route: 050
  25. IMODIUM [Concomitant]
     Active Substance: LOPERAMIDE HYDROCHLORIDE
     Route: 050
  26. PREDNISOLONE. [Concomitant]
     Active Substance: PREDNISOLONE
     Route: 050
  27. ENALAPRIL [Concomitant]
     Active Substance: ENALAPRIL
     Route: 050

REACTIONS (10)
  - Chemotherapy [Unknown]
  - Spinal fracture [Recovering/Resolving]
  - Malaise [Not Recovered/Not Resolved]
  - Back pain [Recovered/Resolved]
  - Limb injury [Not Recovered/Not Resolved]
  - Muscular weakness [Not Recovered/Not Resolved]
  - Radiotherapy [Not Recovered/Not Resolved]
  - Head injury [Not Recovered/Not Resolved]
  - Fall [Not Recovered/Not Resolved]
  - Arthralgia [Recovered/Resolved]

NARRATIVE: CASE EVENT DATE: 201912
